FAERS Safety Report 19093246 (Version 3)
Quarter: 2021Q2

REPORT INFORMATION
  Report Type: Report from Study
  Country: MX (occurrence: MX)
  Receive Date: 20210405
  Receipt Date: 20210518
  Transmission Date: 20210717
  Serious: Yes (Other)
  Sender: FDA-Public Use
  Company Number: NVSC2021MX072956

PATIENT
  Age: 37 Year
  Sex: Female
  Weight: 58 kg

DRUGS (2)
  1. GILENYA [Suspect]
     Active Substance: FINGOLIMOD HYDROCHLORIDE
     Indication: MULTIPLE SCLEROSIS
     Dosage: 1 DF (0.5 MG), QD
     Route: 048
     Dates: start: 202101
  2. GILENYA [Suspect]
     Active Substance: FINGOLIMOD HYDROCHLORIDE
     Dosage: 1 DF (0.5 MG), QD
     Route: 065

REACTIONS (6)
  - Hepatic steatosis [Not Recovered/Not Resolved]
  - Emotional distress [Unknown]
  - Drug tolerance decreased [Unknown]
  - Hepatic enzyme increased [Recovering/Resolving]
  - Stress [Unknown]
  - Psychiatric symptom [Unknown]

NARRATIVE: CASE EVENT DATE: 20210212
